FAERS Safety Report 14175848 (Version 1)
Quarter: 2017Q4

REPORT INFORMATION
  Report Type: Spontaneous
  Country: US (occurrence: US)
  Receive Date: 20171109
  Receipt Date: 20171109
  Transmission Date: 20180321
  Serious: No
  Sender: FDA-Public Use
  Company Number: US-B.I. PHARMACEUTICALS,INC./RIDGEFIELD-2017-BI-059561

PATIENT
  Sex: Male

DRUGS (1)
  1. ATROVENT [Suspect]
     Active Substance: IPRATROPIUM BROMIDE
     Indication: PRODUCT USED FOR UNKNOWN INDICATION
     Dosage: STRENGTH: 17MCG; FORMULATION: INHALATION AEROSOL; ADMIN CORRECT?NR; ACTION TAKEN: NOT REPORTED
     Route: 055

REACTIONS (2)
  - Feeling cold [Unknown]
  - Dyspnoea [Unknown]
